FAERS Safety Report 17563050 (Version 1)
Quarter: 2020Q1

REPORT INFORMATION
  Report Type: Spontaneous
  Country: US (occurrence: US)
  Receive Date: 20200319
  Receipt Date: 20200319
  Transmission Date: 20200409
  Serious: Yes (Other)
  Sender: FDA-Public Use
  Company Number: US-BAXTER-2020BAX005754

PATIENT
  Sex: Male

DRUGS (6)
  1. FLUCONAZOLE INJECTION, USP [Suspect]
     Active Substance: FLUCONAZOLE
     Indication: CANDIDA INFECTION
     Route: 065
  2. AMPHOTERICIN B. [Concomitant]
     Active Substance: AMPHOTERICIN B
     Indication: CANDIDA INFECTION
     Route: 065
  3. FLUCONAZOLE. [Concomitant]
     Active Substance: FLUCONAZOLE
     Indication: CANDIDA INFECTION
     Route: 042
  4. FLUCYTOSINE. [Concomitant]
     Active Substance: FLUCYTOSINE
     Indication: CANDIDA INFECTION
     Route: 065
  5. FLUCONAZOLE INJECTION, USP [Suspect]
     Active Substance: FLUCONAZOLE
     Indication: ANTIBIOTIC THERAPY
  6. CASPOFUNGIN ACETATE. [Concomitant]
     Active Substance: CASPOFUNGIN ACETATE
     Indication: CANDIDA INFECTION
     Route: 042

REACTIONS (1)
  - Pathogen resistance [Unknown]
